FAERS Safety Report 17950361 (Version 1)
Quarter: 2020Q2

REPORT INFORMATION
  Report Type: Report from Study
  Country: CA (occurrence: CA)
  Receive Date: 20200626
  Receipt Date: 20200626
  Transmission Date: 20200714
  Serious: No
  Sender: FDA-Public Use
  Company Number: CA-ROCHE-2629877

PATIENT
  Sex: Female

DRUGS (3)
  1. PREDNISONE. [Concomitant]
     Active Substance: PREDNISONE
  2. OCREVUS [Suspect]
     Active Substance: OCRELIZUMAB
     Indication: PRIMARY PROGRESSIVE MULTIPLE SCLEROSIS
     Dosage: 300 MG AT DAY 0 AND 14, THEN 600 MG EVERY 6 MONTH
     Route: 042
     Dates: start: 20190130
  3. BENADRYL [Concomitant]
     Active Substance: DIPHENHYDRAMINE HYDROCHLORIDE

REACTIONS (7)
  - Hypoaesthesia oral [Recovered/Resolved]
  - Eye paraesthesia [Recovering/Resolving]
  - Eye pruritus [Recovering/Resolving]
  - Hypoaesthesia [Recovering/Resolving]
  - Herpes zoster [Recovering/Resolving]
  - Paraesthesia [Recovering/Resolving]
  - Pain [Recovering/Resolving]
